FAERS Safety Report 6700170-6 (Version None)
Quarter: 2010Q2

REPORT INFORMATION
  Report Type: 
  Country: None (occurrence: None)
  Receive Date: 20100426
  Receipt Date: 20100415
  Transmission Date: 20101027
  Serious: Yes (Hospitalization)
  Sender: FDA-Public Use
  Company Number: SPV1-2010-00230

PATIENT
  Age: 80 Year
  Sex: Male

DRUGS (11)
  1. FOSRENOL [Suspect]
     Indication: HYPERPHOSPHATAEMIA
     Dosage: 2250 MG, ORAL
     Route: 048
     Dates: start: 20090901, end: 20100206
  2. WARFARIN SODIUM [Suspect]
     Indication: ATRIAL FIBRILLATION
     Dosage: ORAL
     Route: 048
     Dates: start: 20090901
  3. PHOSBLOCK (SEVELAMER HYDROCHLORIDE) [Concomitant]
  4. PERSANTIN [Concomitant]
  5. DOPS (DROXIDOPA) [Concomitant]
  6. DIGOXIN [Concomitant]
  7. SORBITOL (SORBITOL) [Concomitant]
  8. SELBEX (TEPRENONE) [Concomitant]
  9. SENNOSIDE A+B CALCIUM (SENNOSIDE A+B CALCIUM) [Concomitant]
  10. RISUMIC (AMEZINIUM METILSULFATE) [Concomitant]
  11. CINACALCET HYDROCHLORIDE (CINACALCET HYDROCHLORIDE) [Concomitant]

REACTIONS (7)
  - DRUG ADMINISTRATION ERROR [None]
  - FALL [None]
  - MELAENA [None]
  - PELVIC FRACTURE [None]
  - RECTAL ULCER [None]
  - WRONG TECHNIQUE IN DRUG USAGE PROCESS [None]
  - X-RAY GASTROINTESTINAL TRACT ABNORMAL [None]
